FAERS Safety Report 7536934-9 (Version None)
Quarter: 2011Q2

REPORT INFORMATION
  Report Type: 
  Country: None (occurrence: None)
  Receive Date: 20110608
  Receipt Date: 20110608
  Transmission Date: 20111010
  Serious: Yes (Other)
  Sender: FDA-Public Use
  Company Number: None

PATIENT
  Sex: Female
  Weight: 88.4514 kg

DRUGS (9)
  1. VIT D [Concomitant]
  2. ENBREL [Suspect]
     Indication: POLYMYALGIA RHEUMATICA
     Dosage: 1 ONCE WEEKLY 057
  3. VIT C [Concomitant]
  4. MULTI VIT [Concomitant]
  5. PREDNISONE [Concomitant]
  6. PROZAC [Concomitant]
  7. FISH OIL [Concomitant]
  8. RANITIDINE [Concomitant]
  9. PROAIR HFA [Concomitant]

REACTIONS (5)
  - WEIGHT INCREASED [None]
  - HYPERSENSITIVITY [None]
  - OEDEMA PERIPHERAL [None]
  - SWELLING FACE [None]
  - PAIN IN EXTREMITY [None]
